FAERS Safety Report 7495136-5 (Version None)
Quarter: 2011Q2

REPORT INFORMATION
  Report Type: 
  Country: None (occurrence: None)
  Receive Date: 20110520
  Receipt Date: 20110509
  Transmission Date: 20111010
  Serious: Yes (Death, Other)
  Sender: FDA-Public Use
  Company Number: NG-WATSON-2011-06792

PATIENT

DRUGS (2)
  1. CHLOROQUINE (WATSON LABORATORIES) [Suspect]
     Indication: MALARIA
     Dosage: UNK
  2. MULTIPLE CONCOMITANT MEDICATIONS [Suspect]
     Indication: PRODUCT USED FOR UNKNOWN INDICATION

REACTIONS (2)
  - SYNCOPE [None]
  - CARDIAC ARREST [None]
